FAERS Safety Report 4312335-1 (Version None)
Quarter: 2004Q1

REPORT INFORMATION
  Report Type: 
  Country: None (occurrence: None)
  Receive Date: 20040304
  Receipt Date: 20040304
  Transmission Date: 20041129
  Serious: No
  Sender: FDA-Public Use
  Company Number: None

PATIENT
  Sex: Male
  Weight: 108.8633 kg

DRUGS (7)
  1. COZAAR [Suspect]
     Indication: HYPERTENSION
  2. SULAR [Concomitant]
  3. LASIX [Concomitant]
  4. ATENOLOL [Concomitant]
  5. ALLOPURINOL [Concomitant]
  6. SINGULAIR [Concomitant]
  7. HCT(HYDROCHLOROTHIAZIDE) [Concomitant]

REACTIONS (1)
  - DIZZINESS [None]
